FAERS Safety Report 6023908-2 (Version None)
Quarter: 2008Q4

REPORT INFORMATION
  Report Type: 
  Country: None (occurrence: None)
  Receive Date: 20081223
  Receipt Date: 20081216
  Transmission Date: 20090506
  Serious: Yes (Hospitalization)
  Sender: FDA-Public Use
  Company Number: OMPQ-NO-0812S-1116

PATIENT
  Age: 67 Year
  Sex: Male

DRUGS (12)
  1. OMNIPAQUE (IOHEXOL) [Suspect]
     Indication: CATHETERISATION CARDIAC
     Dosage: 150 ML, SINGLE DOSE, CORONARY
     Dates: start: 20081106, end: 20081106
  2. FAMOTIDINE (GASTER D) [Concomitant]
  3. ACETYLSALICYLIC ACID (BAYASPIRIN) [Concomitant]
  4. CARVEDILOL (ARTIST) [Concomitant]
  5. NORVASC [Concomitant]
  6. KALLIDINOGENASE (CARNACULIN) [Concomitant]
  7. MICARDIS [Concomitant]
  8. EPERISONE HYDROCHLORIDE (MYONAL) [Concomitant]
  9. ORGAN LYSATE, STANDARDIZED (NEUROTROPIN) [Concomitant]
  10. NICORANDIL (SIGMART) [Concomitant]
  11. MECOBALAMIN (METHYLCOBAL) [Concomitant]
  12. PRECIPITATED CALCIUM (CALCIUM CARBONATE) [Concomitant]

REACTIONS (1)
  - OCULOMUCOCUTANEOUS SYNDROME [None]
